FAERS Safety Report 6498345-7 (Version None)
Quarter: 2009Q4

REPORT INFORMATION
  Report Type: 
  Country: None (occurrence: None)
  Receive Date: 20091215
  Receipt Date: 20091207
  Transmission Date: 20100525
  Serious: Yes (Other)
  Sender: FDA-Public Use
  Company Number: FR-TEVA-217321ISR

PATIENT

DRUGS (1)
  1. AMOXICILLIN [Suspect]
     Route: 064

REACTIONS (1)
  - BRADYCARDIA [None]
